FAERS Safety Report 15725851 (Version 6)
Quarter: 2021Q3

REPORT INFORMATION
  Report Type: Report from Study
  Country: US (occurrence: US)
  Receive Date: 20181216
  Receipt Date: 20210927
  Transmission Date: 20211014
  Serious: Yes (Other)
  Sender: FDA-Public Use
  Company Number: PHEH2018US052113

PATIENT
  Age: 4 Year
  Sex: Female

DRUGS (2)
  1. AFINITOR DISPERZ [Suspect]
     Active Substance: EVEROLIMUS
     Dosage: 5 MG, QD
     Route: 048
  2. AFINITOR DISPERZ [Suspect]
     Active Substance: EVEROLIMUS
     Indication: ASTROCYTOMA, LOW GRADE
     Dosage: 3 MG, QD
     Route: 048
     Dates: start: 20180118

REACTIONS (8)
  - Autism spectrum disorder [Unknown]
  - Scab [Unknown]
  - Drug level below therapeutic [Unknown]
  - Contusion [Unknown]
  - Dry skin [Unknown]
  - Pneumonia [Recovered/Resolved]
  - Epistaxis [Unknown]
  - Seizure [Unknown]

NARRATIVE: CASE EVENT DATE: 202002
